FAERS Safety Report 5285746-8 (Version None)
Quarter: 2007Q1

REPORT INFORMATION
  Report Type: 
  Country: None (occurrence: None)
  Receive Date: 20070126
  Receipt Date: 20060419
  Transmission Date: 20070707
  Serious: No
  Sender: FDA-Public Use
  Company Number: 2006CT001179

PATIENT
  Age: 65 Year
  Sex: Female
  Weight: 69 kg

DRUGS (21)
  1. VENTAVIS [Suspect]
     Indication: PULMONARY HYPERTENSION
     Dosage: SEE IMAGE
     Route: 055
     Dates: start: 20060301, end: 20060330
  2. VENTAVIS [Suspect]
     Indication: PULMONARY HYPERTENSION
     Dosage: SEE IMAGE
     Route: 055
     Dates: start: 20060330, end: 20060412
  3. ADVAIR DISKUS 100/50 [Concomitant]
  4. ALPRAZOLAM [Concomitant]
  5. CELEXA [Concomitant]
  6. WARFARIN SODIUM [Concomitant]
  7. FLEXERIL [Concomitant]
  8. LANOXIN [Concomitant]
  9. LOPERAMIDE HYDROCHLORIDE [Concomitant]
  10. LORATADINE [Concomitant]
  11. VITAMIN CAP [Concomitant]
  12. NIFEDIPINE [Concomitant]
  13. OXYGEN [Concomitant]
  14. PERCOCET [Concomitant]
  15. PRILOSEC [Concomitant]
  16. PROCHLORPERAZINE [Concomitant]
  17. SPIRONOLACTONE [Concomitant]
  18. TRACLEER [Concomitant]
  19. TYLENOL [Concomitant]
  20. ZANTAC [Concomitant]
  21. ZYRTEC [Concomitant]

REACTIONS (3)
  - ANXIETY [None]
  - NO THERAPEUTIC RESPONSE [None]
  - PULMONARY HYPERTENSION [None]
